FAERS Safety Report 5606055-0 (Version None)
Quarter: 2008Q1

REPORT INFORMATION
  Report Type: 
  Country: None (occurrence: None)
  Receive Date: 20080129
  Receipt Date: 20080123
  Transmission Date: 20080703
  Serious: Yes (Congenital Anomaly, Other)
  Sender: FDA-Public Use
  Company Number: CA-AVENTIS-200711159GDDC

PATIENT
  Age: 29 Year
  Sex: Female

DRUGS (1)
  1. LANTUS [Suspect]
     Route: 058
     Dates: start: 20060801

REACTIONS (3)
  - ABORTION INDUCED [None]
  - DRUG EXPOSURE DURING PREGNANCY [None]
  - TRISOMY 21 [None]
